FAERS Safety Report 7543017-0 (Version None)
Quarter: 2011Q2

REPORT INFORMATION
  Report Type: 
  Country: None (occurrence: None)
  Receive Date: 20110613
  Receipt Date: 20110608
  Transmission Date: 20111010
  Serious: Yes (Death, Hospitalization)
  Sender: FDA-Public Use
  Company Number: PHHY2011BR21885

PATIENT
  Age: 39 Year
  Sex: Female

DRUGS (1)
  1. CLOZAPINE [Suspect]

REACTIONS (4)
  - DEATH [None]
  - CONVULSION [None]
  - PYREXIA [None]
  - FEELING ABNORMAL [None]
